FAERS Safety Report 11350388 (Version 1)
Quarter: 2015Q3

REPORT INFORMATION
  Report Type: Spontaneous
  Country: IT (occurrence: IT)
  Receive Date: 20150807
  Receipt Date: 20150807
  Transmission Date: 20151125
  Serious: Yes (Other)
  Sender: FDA-Public Use
  Company Number: IT-BRISTOL-MYERS SQUIBB COMPANY-BMS-2015-050759

PATIENT
  Age: 20 Year
  Sex: Male
  Weight: 75 kg

DRUGS (4)
  1. SERENASE                           /00027401/ [Interacting]
     Active Substance: HALOPERIDOL
     Indication: PSYCHOMOTOR HYPERACTIVITY
     Dosage: 1 DF, QD
     Route: 048
  2. VALPROIC ACID. [Interacting]
     Active Substance: VALPROIC ACID
     Indication: AGGRESSION
     Dosage: 1000 MG, QD
     Route: 048
     Dates: start: 20150707, end: 20150721
  3. VALIUM [Concomitant]
     Active Substance: DIAZEPAM
     Indication: MANIA
     Dosage: 30 DF, UNK
     Route: 065
     Dates: start: 20150707, end: 20150720
  4. ARIPIPRAZOLE. [Suspect]
     Active Substance: ARIPIPRAZOLE
     Indication: DELUSION OF GRANDEUR
     Dosage: 30 MG, QD
     Route: 048
     Dates: start: 20150707, end: 20150721

REACTIONS (6)
  - Drug interaction [Unknown]
  - Salivary hypersecretion [Not Recovered/Not Resolved]
  - Dysphagia [Not Recovered/Not Resolved]
  - Muscle rigidity [Not Recovered/Not Resolved]
  - Off label use [Unknown]
  - Dystonia [Not Recovered/Not Resolved]

NARRATIVE: CASE EVENT DATE: 20150721
